FAERS Safety Report 4883798-8 (Version None)
Quarter: 2005Q4

REPORT INFORMATION
  Report Type: 
  Country: None (occurrence: None)
  Receive Date: 20051201
  Receipt Date: 20050926
  Transmission Date: 20060501
  Serious: No
  Sender: FDA-Public Use
  Company Number: 2005PV002494

PATIENT
  Age: 78 Year
  Sex: Male

DRUGS (9)
  1. BYETTA [Suspect]
     Indication: DIABETES MELLITUS NON-INSULIN-DEPENDENT
     Dosage: 5 MCG; BID; SC
     Route: 058
     Dates: start: 20050901
  2. SOTALOL HCL [Concomitant]
  3. TAZTIA [Concomitant]
  4. FUROSEMIDE [Concomitant]
  5. LEVOTHYROXINE SODIUM [Concomitant]
  6. POTASSIUM [Concomitant]
  7. GLIPIZIDE [Concomitant]
  8. ADVAIR DISKUS 250/50 [Concomitant]
  9. ALBUTEROL [Concomitant]

REACTIONS (3)
  - DECREASED APPETITE [None]
  - THERAPEUTIC RESPONSE UNEXPECTED [None]
  - WEIGHT DECREASED [None]
